FAERS Safety Report 24120648 (Version 1)
Quarter: 2024Q3

REPORT INFORMATION
  Report Type: Spontaneous
  Country: IN (occurrence: IN)
  Receive Date: 20240722
  Receipt Date: 20240722
  Transmission Date: 20241016
  Serious: Yes (Hospitalization)
  Sender: JUBILANT
  Company Number: IN-JUBILANT CADISTA PHARMACEUTICALS-2024JUB00056

PATIENT
  Age: 61 Year
  Sex: Male

DRUGS (2)
  1. METHYLPREDNISOLONE [Suspect]
     Active Substance: METHYLPREDNISOLONE
     Indication: Skin lesion
     Dosage: 80 MG
     Route: 042
  2. UNSPECIFIED INGREDIENT [Suspect]
     Active Substance: UNSPECIFIED INGREDIENT
     Indication: Skin lesion
     Dosage: UNK

REACTIONS (3)
  - Delirium [Recovering/Resolving]
  - Persecutory delusion [Recovering/Resolving]
  - Hallucination, auditory [Recovering/Resolving]
